FAERS Safety Report 7244933-X (Version None)
Quarter: 2011Q1

REPORT INFORMATION
  Report Type: 
  Country: None (occurrence: None)
  Receive Date: 20110126
  Receipt Date: 20110120
  Transmission Date: 20110831
  Serious: Yes (Other)
  Sender: FDA-Public Use
  Company Number: US-ELI_LILLY_AND_COMPANY-US200910006443

PATIENT
  Sex: Female
  Weight: 83.9 kg

DRUGS (5)
  1. METFORMIN HCL [Concomitant]
     Indication: TYPE 2 DIABETES MELLITUS
     Dosage: 1000 MG, 2/D
     Route: 048
  2. ACTOS [Concomitant]
     Indication: TYPE 2 DIABETES MELLITUS
     Dosage: 15 MG, DAILY (1/D)
     Route: 048
  3. BYETTA [Suspect]
     Dosage: 5 UG, DAILY (1/D)
     Route: 058
     Dates: start: 20100101
  4. L-DOPA [Concomitant]
     Route: 048
  5. BYETTA [Suspect]
     Indication: TYPE 2 DIABETES MELLITUS
     Dosage: 5 UG, 2/D
     Route: 058
     Dates: start: 20100101, end: 20100101

REACTIONS (4)
  - MEMORY IMPAIRMENT [None]
  - PARKINSON'S DISEASE [None]
  - FALL [None]
  - UPPER LIMB FRACTURE [None]
